FAERS Safety Report 10373193 (Version 2)
Quarter: 2014Q3

REPORT INFORMATION
  Report Type: Spontaneous
  Country: US (occurrence: US)
  Receive Date: 20140808
  Receipt Date: 20140808
  Transmission Date: 20150326
  Serious: No
  Sender: FDA-Public Use
  Company Number: US-BRISTOL-MYERS SQUIBB COMPANY-20167516

PATIENT
  Age: 59 Year
  Sex: Male
  Weight: 90.7 kg

DRUGS (2)
  1. PROVIGIL [Concomitant]
     Active Substance: MODAFINIL
  2. SPRYCEL [Suspect]
     Active Substance: DASATINIB
     Indication: CHRONIC MYELOID LEUKAEMIA
     Dates: start: 2014

REACTIONS (2)
  - Feeling abnormal [Unknown]
  - Dyspepsia [Unknown]

NARRATIVE: CASE EVENT DATE: 20140204
